FAERS Safety Report 9325045 (Version 1)
Quarter: 2013Q2

REPORT INFORMATION
  Report Type: Spontaneous
  Country: US (occurrence: US)
  Receive Date: 20130603
  Receipt Date: 20130603
  Transmission Date: 20140414
  Serious: No
  Sender: FDA-Public Use
  Company Number: US-ASTRAZENECA-2012SE06934

PATIENT
  Age: 71 Year
  Sex: Female

DRUGS (5)
  1. NEXIUM [Suspect]
     Route: 048
  2. ACCOLATE [Suspect]
     Route: 048
  3. LISINOPRIL [Suspect]
     Route: 048
  4. VENLAFAXINE [Concomitant]
  5. FUROSEMIDE [Concomitant]

REACTIONS (16)
  - Gait disturbance [Unknown]
  - Hiatus hernia [Unknown]
  - Infection [Unknown]
  - Dyspnoea [Unknown]
  - Impaired driving ability [Unknown]
  - Dysphonia [Unknown]
  - Cough [Unknown]
  - Dry mouth [Unknown]
  - Constipation [Unknown]
  - Malaise [Unknown]
  - Insomnia [Unknown]
  - Headache [Unknown]
  - Diarrhoea [Unknown]
  - Abdominal discomfort [Unknown]
  - Drug dose omission [Unknown]
  - Circumstance or information capable of leading to medication error [Unknown]
